FAERS Safety Report 4740683-X (Version None)
Quarter: 2005Q3

REPORT INFORMATION
  Report Type: 
  Country: None (occurrence: None)
  Receive Date: 20050810
  Receipt Date: 20041022
  Transmission Date: 20060218
  Serious: Yes (Other)
  Sender: FDA-Public Use
  Company Number: JPKYO-S-20040039

PATIENT
  Age: 79 Year
  Sex: Male

DRUGS (8)
  1. NAVELBINE [Suspect]
     Indication: NON-SMALL CELL LUNG CANCER
     Route: 042
     Dates: start: 20040119, end: 20040209
  2. MAXIPIME [Concomitant]
     Dates: start: 20040217
  3. SELBEX [Concomitant]
     Dates: start: 20040119
  4. MOBIC [Concomitant]
  5. FERROUS SULFATE TAB [Concomitant]
  6. LOXOPROFEN [Concomitant]
     Dates: start: 20040123
  7. GEMZAR [Concomitant]
     Dates: start: 20040119
  8. POLARAMINE [Concomitant]
     Dates: start: 20040127

REACTIONS (7)
  - BONE MARROW DEPRESSION [None]
  - COUGH [None]
  - DYSPHONIA [None]
  - ECZEMA [None]
  - INTERSTITIAL LUNG DISEASE [None]
  - PHLEBITIS [None]
  - PYREXIA [None]
